FAERS Safety Report 10171875 (Version 2)
Quarter: 2014Q2

REPORT INFORMATION
  Report Type: Spontaneous
  Country: JP (occurrence: None)
  Receive Date: 20140512
  Receipt Date: 20140611
  Transmission Date: 20141212
  Serious: Yes (Other)
  Sender: FDA-Public Use
  Company Number: KAD201405-000472

PATIENT
  Age: 64 Year
  Sex: Female

DRUGS (3)
  1. RIBAVIRIN (RIBAVIRIN) [Suspect]
     Indication: CHRONIC HEPATITIS C
  2. INTERFERON ALFACON-1 [Suspect]
     Indication: CHRONIC HEPATITIS C
  3. PEGINTRON [Suspect]
     Indication: CHRONIC HEPATITIS C

REACTIONS (2)
  - Hepatocellular carcinoma [None]
  - Hepatitis C [None]
